FAERS Safety Report 18562832 (Version 1)
Quarter: 2020Q4

REPORT INFORMATION
  Report Type: Spontaneous
  Country: US (occurrence: US)
  Receive Date: 20201130
  Receipt Date: 20201130
  Transmission Date: 20210114
  Serious: No
  Sender: FDA-Public Use
  Company Number: US-ROCHE-2388739

PATIENT
  Sex: Female
  Weight: 86.26 kg

DRUGS (6)
  1. LUCENTIS [Suspect]
     Active Substance: RANIBIZUMAB
     Indication: PATHOLOGIC MYOPIA
     Dosage: YES
     Route: 065
     Dates: start: 20190606
  2. ALBUTEROL. [Concomitant]
     Active Substance: ALBUTEROL
  3. ZYRTEC (UNITED STATES) [Concomitant]
  4. MUCINEX [Concomitant]
     Active Substance: GUAIFENESIN
  5. IBUPROFEN. [Concomitant]
     Active Substance: IBUPROFEN
  6. ADVAIR HFA [Concomitant]
     Active Substance: FLUTICASONE PROPIONATE\SALMETEROL XINAFOATE
     Dosage: 250/50 TWICE A DAY FOR COPD

REACTIONS (4)
  - Sinusitis [Unknown]
  - Cough [Unknown]
  - Intentional product use issue [Unknown]
  - Off label use [Unknown]
